FAERS Safety Report 7174030 (Version 8)
Quarter: 2014Q2

REPORT INFORMATION
  Report Type: Report from Study
  Country: US (occurrence: US)
  Receive Date: 20091111
  Receipt Date: 20140627
  Transmission Date: 20141212
  Serious: Yes (Congenital Anomaly)
  Sender: FDA-Public Use
  Company Number: US-B.I. PHARMACEUTICALS,INC./RIDGEFIELD-2009-BP-12944BP

PATIENT
  Age: 0 Year
  Sex: Male

DRUGS (6)
  1. VIRAMUNE [Suspect]
     Indication: EXPOSURE DURING PREGNANCY
     Dosage: 400 MG
     Route: 064
     Dates: start: 20090628, end: 20090712
  2. COMBIVIR [Concomitant]
     Indication: EXPOSURE DURING PREGNANCY
     Dosage: DOSE PER APPLICATION AND DAILY DOSE: 2 TAB/CAPS
     Route: 064
     Dates: start: 20090628, end: 20091113
  3. KALETRA [Concomitant]
     Indication: EXPOSURE DURING PREGNANCY
     Dosage: DOSE PER APPLICATION AND DAILY DOSE: 4 TAB/CAPS
     Route: 064
     Dates: start: 20090720, end: 20091008
  4. KALETRA [Concomitant]
     Dosage: DOSE PER APPLICATION AND DAILY DOSE: 6 TAB/CAPS
     Route: 064
     Dates: start: 20091008
  5. VIREAD [Concomitant]
     Indication: EXPOSURE DURING PREGNANCY
     Dosage: 300 MG
     Route: 064
     Dates: start: 20091113
  6. ISENTRESS [Concomitant]
     Indication: EXPOSURE DURING PREGNANCY
     Dosage: 800 MG
     Route: 064
     Dates: start: 20091114

REACTIONS (1)
  - Adrenal cyst [Unknown]
